FAERS Safety Report 4764234-9 (Version None)
Quarter: 2005Q3

REPORT INFORMATION
  Report Type: 
  Country: None (occurrence: None)
  Receive Date: 20050907
  Receipt Date: 20050907
  Transmission Date: 20060218
  Serious: Yes (Death)
  Sender: FDA-Public Use
  Company Number: None

PATIENT
  Age: 51 Year
  Sex: Male

DRUGS (10)
  1. ZERIT [Suspect]
     Indication: HIV INFECTION
     Dosage: 30 MG PO
     Route: 048
     Dates: start: 20050706, end: 20050701
  2. LAMIVUDINE [Suspect]
     Indication: HIV INFECTION
     Dosage: 150 MG PO
     Route: 048
     Dates: start: 20050706, end: 20050701
  3. STOCRIN (MSD) [Suspect]
     Indication: HIV INFECTION
     Dosage: 30 MG PO
     Route: 048
     Dates: start: 20050706, end: 20050701
  4. BACTRIM [Concomitant]
  5. FOLATE [Concomitant]
  6. VITAMIN B COMPLEX CAP [Concomitant]
  7. FERROUS SULFATE [Concomitant]
  8. NICOTINAMIDE [Concomitant]
  9. AMITRIPTYLINE HCL [Concomitant]
  10. RIFAFOUR [Concomitant]

REACTIONS (8)
  - ACIDOSIS [None]
  - ANAEMIA [None]
  - COAGULOPATHY [None]
  - EPISTAXIS [None]
  - PNEUMONIA [None]
  - PULMONARY TUBERCULOSIS [None]
  - RENAL FAILURE ACUTE [None]
  - THROMBOCYTOPENIA [None]
